FAERS Safety Report 19891721 (Version 5)
Quarter: 2021Q4

REPORT INFORMATION
  Report Type: Spontaneous
  Country: US (occurrence: US)
  Receive Date: 20210928
  Receipt Date: 20211210
  Transmission Date: 20220303
  Serious: Yes (Hospitalization, Other)
  Sender: FDA-Public Use
  Company Number: US-PFIZER INC-202101224344

PATIENT
  Age: 86 Year
  Sex: Male
  Weight: 83.91 kg

DRUGS (18)
  1. VYNDAMAX [Suspect]
     Active Substance: TAFAMIDIS
     Indication: Cardiac amyloidosis
     Dosage: 61 MG, 1X/DAY
     Dates: start: 202007
  2. VYNDAMAX [Suspect]
     Active Substance: TAFAMIDIS
     Dosage: 61 MG
  3. XARELTO [Concomitant]
     Active Substance: RIVAROXABAN
     Dosage: 20 MG, 1X/DAY
  4. SYNTHROID [Concomitant]
     Active Substance: LEVOTHYROXINE SODIUM
     Indication: Hypothyroidism
     Dosage: 125 UG, DAILY
     Route: 048
     Dates: start: 20200911
  5. CYMBALTA [Concomitant]
     Active Substance: DULOXETINE HYDROCHLORIDE
     Indication: Neuralgia
     Dosage: 20 MG, 1X/DAY
     Route: 048
     Dates: start: 20200911
  6. IMURAN [Concomitant]
     Active Substance: AZATHIOPRINE
     Indication: Amyloidosis
     Dosage: 100 MG, 1X/DAY (TAKE 2 TABLETS IN THE EVENING)
     Route: 048
     Dates: start: 20210628
  7. LIPITOR [Concomitant]
     Active Substance: ATORVASTATIN CALCIUM
     Indication: Hypertriglyceridaemia
     Dosage: 40 MG, 1X/DAY
     Route: 048
     Dates: start: 20200911
  8. LASIX [Concomitant]
     Active Substance: FUROSEMIDE
     Indication: Oedema
     Dosage: 20 MG, 1X/DAY
     Route: 048
     Dates: start: 20210628
  9. VITAMIN C [Concomitant]
     Active Substance: ASCORBIC ACID
     Dosage: 1000 MG, DAILY
  10. VITAMIN D3 [Concomitant]
     Active Substance: CHOLECALCIFEROL
     Dosage: 5000 IU, 2X/DAY
     Route: 048
  11. VITAMIN D3 [Concomitant]
     Active Substance: CHOLECALCIFEROL
     Dosage: 5000 IU, DAILY
     Route: 048
  12. COENZYME Q10 [Concomitant]
     Active Substance: DIETARY SUPPLEMENT\UBIDECARENONE
     Dosage: 300 MG, DAILY
     Route: 048
  13. FERROUS SULFATE [Concomitant]
     Active Substance: FERROUS SULFATE
     Dosage: 325 MG, DAILY (WITH BREAKFAST)
     Route: 048
  14. FOLVITE [FOLIC ACID] [Concomitant]
     Dosage: 800 UG, DAILY
     Route: 048
  15. FLORAJEN3 [Concomitant]
     Dosage: 460 MG, DAILY
     Route: 048
  16. DOCONEXENT\ICOSAPENT [Concomitant]
     Active Substance: DOCONEXENT\ICOSAPENT
     Dosage: UNK, 1X/DAY (1000-4000 MG)
     Route: 048
  17. POTASSIUM [Concomitant]
     Active Substance: POTASSIUM
     Dosage: 99 MG
  18. TOZINAMERAN [Concomitant]
     Active Substance: TOZINAMERAN
     Dosage: UNK

REACTIONS (21)
  - Pneumonia [Recovered/Resolved]
  - Dyspnoea [Unknown]
  - Sepsis [Unknown]
  - Pneumonia bacterial [Unknown]
  - Pulmonary artery dilatation [Unknown]
  - Pulmonary arterial hypertension [Unknown]
  - Arteriosclerosis coronary artery [Unknown]
  - Aortic arteriosclerosis [Unknown]
  - Cough [Unknown]
  - Pyrexia [Unknown]
  - Chills [Unknown]
  - Troponin I increased [Unknown]
  - Blood lactic acid increased [Unknown]
  - Pleural effusion [Unknown]
  - Cardiomegaly [Unknown]
  - Condition aggravated [Unknown]
  - Mean cell haemoglobin increased [Unknown]
  - Mean cell volume increased [Unknown]
  - Red blood cell count decreased [Unknown]
  - Blood glucose increased [Unknown]
  - Spinal osteoarthritis [Unknown]

NARRATIVE: CASE EVENT DATE: 20210912
